FAERS Safety Report 4833485-7 (Version None)
Quarter: 2005Q4

REPORT INFORMATION
  Report Type: 
  Country: None (occurrence: None)
  Receive Date: 20051121
  Receipt Date: 20050929
  Transmission Date: 20060501
  Serious: Yes (Hospitalization, Other)
  Sender: FDA-Public Use
  Company Number: US-MERCK-0510USA00413

PATIENT
  Age: 46 Year
  Sex: Male
  Weight: 83 kg

DRUGS (14)
  1. VIOXX [Suspect]
     Indication: ARTHRALGIA
     Route: 048
     Dates: start: 20000101, end: 20040901
  2. VIOXX [Suspect]
     Route: 048
     Dates: start: 20000101, end: 20040901
  3. VIOXX [Suspect]
     Indication: NEPHROLITHIASIS
     Route: 048
     Dates: start: 20000101, end: 20040901
  4. VIOXX [Suspect]
     Route: 048
     Dates: start: 20000101, end: 20040901
  5. HYDROCHLOROTHIAZIDE [Concomitant]
     Route: 065
  6. HYDROCODONE HYDROCHLORIDE [Concomitant]
     Route: 065
  7. NORVASC [Concomitant]
     Route: 065
  8. ADVIL [Concomitant]
     Route: 065
  9. ZOCOR [Concomitant]
     Route: 065
  10. ZITHROMAX [Concomitant]
     Route: 065
  11. VEETIDS [Concomitant]
     Route: 065
  12. SPIRONOLACTONE [Concomitant]
     Route: 065
  13. KLOR-CON [Concomitant]
     Route: 065
  14. [THERAPY UNSPECIFIED] [Concomitant]
     Route: 065

REACTIONS (9)
  - ANGINA PECTORIS [None]
  - ARTERIOSCLEROSIS CORONARY ARTERY [None]
  - ASTHENIA [None]
  - CARDIAC DISORDER [None]
  - CORONARY ARTERY DISEASE [None]
  - JOINT INJURY [None]
  - MYOCARDIAL INFARCTION [None]
  - NEPHROLITHIASIS [None]
  - ROAD TRAFFIC ACCIDENT [None]
